FAERS Safety Report 20228346 (Version 1)
Quarter: 2021Q4

REPORT INFORMATION
  Report Type: Spontaneous
  Country: GB (occurrence: GB)
  Receive Date: 20211224
  Receipt Date: 20211224
  Transmission Date: 20220303
  Serious: Yes (Other)
  Sender: FDA-Public Use
  Company Number: None

PATIENT
  Age: 60 Year
  Sex: Male
  Weight: 60 kg

DRUGS (4)
  1. LAMOTRIGINE [Suspect]
     Active Substance: LAMOTRIGINE
     Indication: Epilepsy
     Dosage: 100 MILLIGRAM DAILY;
     Route: 048
     Dates: start: 20210510
  2. EPILIM [Concomitant]
     Active Substance: VALPROATE SODIUM
     Dosage: 1200 MILLIGRAM DAILY;
  3. OLANZAPINE [Concomitant]
     Active Substance: OLANZAPINE
     Dosage: 10 MILLIGRAM DAILY;
  4. SARS-COV-2 [Concomitant]
     Active Substance: SARS-COV-2
     Indication: COVID-19 immunisation
     Dosage: DOSE 3C
     Dates: start: 2021, end: 2021

REACTIONS (5)
  - Rash pruritic [Not Recovered/Not Resolved]
  - Headache [Not Recovered/Not Resolved]
  - Aggression [Not Recovered/Not Resolved]
  - Dizziness [Not Recovered/Not Resolved]
  - Fatigue [Not Recovered/Not Resolved]

NARRATIVE: CASE EVENT DATE: 20211203
